FAERS Safety Report 10181494 (Version 1)
Quarter: 2014Q2

REPORT INFORMATION
  Report Type: Spontaneous
  Country: US (occurrence: US)
  Receive Date: 20140519
  Receipt Date: 20140519
  Transmission Date: 20141212
  Serious: Yes (Hospitalization)
  Sender: FDA-Public Use
  Company Number: US-GLAXOSMITHKLINE-A1072827A

PATIENT
  Sex: Female

DRUGS (8)
  1. VENTOLIN [Suspect]
     Indication: ASTHMA
     Dosage: 1PUFF AS REQUIRED
     Route: 055
  2. TRAZODONE [Concomitant]
  3. EFFEXOR [Concomitant]
  4. OMEPRAZOLE [Concomitant]
  5. SINGULAIR [Concomitant]
  6. DIAZEPAM [Concomitant]
  7. BACLOFEN [Concomitant]
  8. FLEXERIL [Concomitant]

REACTIONS (4)
  - Respiratory arrest [Unknown]
  - Anxiety [Unknown]
  - Oral pain [Not Recovered/Not Resolved]
  - Asthma [Unknown]
